FAERS Safety Report 4597670-4 (Version None)
Quarter: 2005Q1

REPORT INFORMATION
  Report Type: 
  Country: None (occurrence: None)
  Receive Date: 20050303
  Receipt Date: 20050210
  Transmission Date: 20050727
  Serious: Yes (Other)
  Sender: FDA-Public Use
  Company Number: DE-GLAXOSMITHKLINE-D0045881A

PATIENT
  Age: 35 Year
  Sex: Female

DRUGS (4)
  1. LAMICTAL [Suspect]
     Dosage: 100MG TWICE PER DAY
     Route: 065
     Dates: start: 19980101
  2. ERGENYL [Suspect]
     Route: 065
     Dates: end: 20040101
  3. TOPAMAX [Suspect]
     Dosage: 300MG TWICE PER DAY
     Route: 065
     Dates: start: 20040101
  4. CARBIMAZOL [Concomitant]
     Dosage: 10MG IN THE MORNING
     Route: 065

REACTIONS (7)
  - CONVULSION [None]
  - DRUG RESISTANCE [None]
  - ENDOCRINE DISORDER [None]
  - HIRSUTISM [None]
  - MENSTRUATION IRREGULAR [None]
  - TREMOR [None]
  - WEIGHT DECREASED [None]
